FAERS Safety Report 18505263 (Version 28)
Quarter: 2022Q2

REPORT INFORMATION
  Report Type: Other
  Country: AR (occurrence: AR)
  Receive Date: 20201116
  Receipt Date: 20220503
  Transmission Date: 20220720
  Serious: Yes (Hospitalization, Other)
  Sender: FDA-Public Use
  Company Number: AR-002147023-NVSC2020AR297872

PATIENT
  Age: 54 Year
  Sex: Female

DRUGS (17)
  1. XOLAIR [Suspect]
     Active Substance: OMALIZUMAB
     Indication: Asthma
     Route: 058
     Dates: start: 20190811
  2. XOLAIR [Suspect]
     Active Substance: OMALIZUMAB
     Route: 058
     Dates: start: 20190801
  3. XOLAIR [Suspect]
     Active Substance: OMALIZUMAB
     Route: 058
  4. XOLAIR [Suspect]
     Active Substance: OMALIZUMAB
     Dosage: BIW
     Route: 058
  5. XOLAIR [Suspect]
     Active Substance: OMALIZUMAB
     Route: 065
  6. XOLAIR [Suspect]
     Active Substance: OMALIZUMAB
     Route: 058
  7. XOLAIR [Suspect]
     Active Substance: OMALIZUMAB
     Route: 058
  8. XOLAIR [Suspect]
     Active Substance: OMALIZUMAB
     Route: 065
  9. XOLAIR [Suspect]
     Active Substance: OMALIZUMAB
     Route: 058
  10. XOLAIR [Suspect]
     Active Substance: OMALIZUMAB
     Route: 058
  11. XOLAIR [Suspect]
     Active Substance: OMALIZUMAB
     Dosage: BIW
     Route: 058
     Dates: start: 20210811
  12. XOLAIR [Suspect]
     Active Substance: OMALIZUMAB
     Route: 058
     Dates: start: 20200811, end: 20210407
  13. XOLAIR [Suspect]
     Active Substance: OMALIZUMAB
     Route: 058
  14. XOLAIR [Suspect]
     Active Substance: OMALIZUMAB
     Route: 058
     Dates: start: 20200811
  15. XOLAIR [Suspect]
     Active Substance: OMALIZUMAB
     Route: 058
     Dates: start: 20100801
  16. XOLAIR [Suspect]
     Active Substance: OMALIZUMAB
     Route: 058
  17. ALBUTEROL [Concomitant]
     Active Substance: ALBUTEROL

REACTIONS (44)
  - Oropharyngeal pain [Unknown]
  - Asthmatic crisis [Not Recovered/Not Resolved]
  - COVID-19 [Unknown]
  - Bronchospasm [Unknown]
  - Feeling abnormal [Unknown]
  - Hypoxia [Unknown]
  - Pneumonia [Recovering/Resolving]
  - Dysphonia [Unknown]
  - Diabetes mellitus [Unknown]
  - Asphyxia [Unknown]
  - Asthma [Unknown]
  - Cough [Unknown]
  - Hypokinesia [Unknown]
  - Respiratory disorder [Not Recovered/Not Resolved]
  - Peripheral swelling [Unknown]
  - Swelling face [Unknown]
  - Vomiting [Not Recovered/Not Resolved]
  - Gait disturbance [Unknown]
  - Fatigue [Unknown]
  - Hand fracture [Unknown]
  - Malaise [Unknown]
  - Influenza [Unknown]
  - Pyrexia [Unknown]
  - Sputum discoloured [Unknown]
  - Oxygen saturation decreased [Unknown]
  - Chills [Unknown]
  - Suspected COVID-19 [Unknown]
  - Nasopharyngitis [Unknown]
  - Pain [Unknown]
  - Illness [Unknown]
  - Back pain [Not Recovered/Not Resolved]
  - Wrist fracture [Unknown]
  - Fall [Unknown]
  - Pain in extremity [Unknown]
  - Product dose omission issue [Unknown]
  - Productive cough [Unknown]
  - Initial insomnia [Unknown]
  - Asthmatic crisis [Recovering/Resolving]
  - Headache [Unknown]
  - Product availability issue [Unknown]
  - Incorrect dose administered [Unknown]
  - Drug ineffective [Unknown]
  - Dyspnoea [Not Recovered/Not Resolved]
  - Aphasia [Not Recovered/Not Resolved]

NARRATIVE: CASE EVENT DATE: 20200925
